FAERS Safety Report 15315190 (Version 3)
Quarter: 2020Q4

REPORT INFORMATION
  Report Type: Other
  Country: US (occurrence: US)
  Receive Date: 20180824
  Receipt Date: 20201022
  Transmission Date: 20210113
  Serious: No
  Sender: FDA-Public Use
  Company Number: US-ROCHE-2070101

PATIENT
  Sex: Female
  Weight: 74.91 kg

DRUGS (6)
  1. CELEXA [Concomitant]
     Active Substance: CITALOPRAM HYDROBROMIDE
     Indication: ANXIETY
     Dosage: ONGOING YES
     Route: 048
     Dates: start: 2011
  2. OCREVUS [Suspect]
     Active Substance: OCRELIZUMAB
     Indication: RELAPSING MULTIPLE SCLEROSIS
     Dosage: JAN-2018 OR FEB-2018?ONGOING YES?07/FEB/2018 AND 2016 OR 2017
     Route: 042
     Dates: start: 20180207
  3. OCREVUS [Suspect]
     Active Substance: OCRELIZUMAB
     Indication: RELAPSING-REMITTING MULTIPLE SCLEROSIS
  4. CELEXA [Concomitant]
     Active Substance: CITALOPRAM HYDROBROMIDE
     Indication: POST-TRAUMATIC STRESS DISORDER
  5. KLONOPIN [Suspect]
     Active Substance: CLONAZEPAM
     Indication: PRODUCT USED FOR UNKNOWN INDICATION
     Dosage: ONGOING: NO
     Route: 065
  6. VIT D [Concomitant]
     Active Substance: VITAMIN D NOS
     Indication: RELAPSING-REMITTING MULTIPLE SCLEROSIS
     Dosage: ONGOING YES

REACTIONS (9)
  - Fungal infection [Not Recovered/Not Resolved]
  - Fatigue [Not Recovered/Not Resolved]
  - Genital herpes [Not Recovered/Not Resolved]
  - Immunodeficiency [Not Recovered/Not Resolved]
  - Weight decreased [Not Recovered/Not Resolved]
  - Headache [Not Recovered/Not Resolved]
  - Anxiety [Unknown]
  - Influenza [Unknown]
  - Nasopharyngitis [Recovered/Resolved]
